FAERS Safety Report 12210171 (Version 1)
Quarter: 2016Q1

REPORT INFORMATION
  Report Type: Spontaneous
  Country: US (occurrence: US)
  Receive Date: 20160325
  Receipt Date: 20160325
  Transmission Date: 20160526
  Serious: No
  Sender: FDA-Public Use
  Company Number: US-PFIZER INC-2016151086

PATIENT
  Age: 77 Year
  Sex: Female
  Weight: 74.84 kg

DRUGS (4)
  1. NOVOLOG [Concomitant]
     Active Substance: INSULIN ASPART
     Indication: DIABETES MELLITUS
     Dosage: SUBCUTANEOUS INJECTION ON A SLIDING SCALE DEPENDING ON BLOOD SUGAR
     Route: 058
  2. LASIX [Concomitant]
     Active Substance: FUROSEMIDE
     Indication: CARDIAC FAILURE
     Dosage: 40 MG, 1X/DAY
     Route: 048
  3. SUTENT [Suspect]
     Active Substance: SUNITINIB MALATE
     Indication: RENAL CANCER
     Dosage: 50 MG, DAILY
     Route: 048
     Dates: start: 20160130, end: 20160305
  4. LANTUS [Concomitant]
     Active Substance: INSULIN GLARGINE
     Indication: DIABETES MELLITUS
     Dosage: 10 IU, 1X/DAY (10 UNITS SUBCUTANEOUS INJECTION ONCE DAILY AT NIGHT)
     Route: 058

REACTIONS (2)
  - Stomatitis [Not Recovered/Not Resolved]
  - Skin fissures [Unknown]
